FAERS Safety Report 8859042 (Version 3)
Quarter: 2012Q4

REPORT INFORMATION
  Report Type: 
  Country: CO (occurrence: CO)
  Receive Date: 20121024
  Receipt Date: 20121128
  Transmission Date: 20130627
  Serious: Yes (Other)
  Sender: FDA-Public Use
  Company Number: CO-AMGEN-COLSP2012067072

PATIENT
  Age: 30 Year
  Sex: Female

DRUGS (8)
  1. ENBREL [Suspect]
     Indication: RHEUMATOID ARTHRITIS
     Dosage: 50 mg, weekly
     Route: 058
     Dates: start: 201208
  2. ENBREL [Suspect]
     Dosage: 50 mg, weekly
     Route: 058
     Dates: start: 201209
  3. METHOTREXATE [Suspect]
     Indication: RHEUMATOID ARTHRITIS
     Dosage: 8 ml every 8 hours
     Route: 058
     Dates: start: 2010
  4. CALCITRIOL [Concomitant]
     Dosage: 25 mg, UNK
  5. CALCIUM WITH VITAMIN D             /01233101/ [Concomitant]
     Indication: RHEUMATOID ARTHRITIS
     Dosage: 150 mg, UNK
     Route: 048
     Dates: start: 201204
  6. THYROXINE [Concomitant]
     Indication: HYPOTHYROIDISM
     Dosage: 100 mg, 1x/day
     Route: 048
     Dates: start: 2003
  7. CHLOROQUINE [Concomitant]
     Indication: RHEUMATOID ARTHRITIS
     Dosage: 250 mg, 1x/day
     Route: 048
     Dates: start: 2010
  8. ACETAMINOPHEN W/CODEINE [Concomitant]
     Indication: PAIN
     Dosage: 500 mg, 4x/day as needed

REACTIONS (7)
  - Injection site infection [Recovered/Resolved]
  - Injection site swelling [Recovered/Resolved]
  - Injection site pain [Not Recovered/Not Resolved]
  - Pyrexia [Not Recovered/Not Resolved]
  - Injection site urticaria [Not Recovered/Not Resolved]
  - Injection site erythema [Not Recovered/Not Resolved]
  - Injection site pruritus [Not Recovered/Not Resolved]
